FAERS Safety Report 7517858-X (Version None)
Quarter: 2011Q2

REPORT INFORMATION
  Report Type: 
  Country: None (occurrence: None)
  Receive Date: 20110602
  Receipt Date: 20110526
  Transmission Date: 20111010
  Serious: Yes (Hospitalization)
  Sender: FDA-Public Use
  Company Number: JP-BRISTOL-MYERS SQUIBB COMPANY-15669310

PATIENT
  Sex: Female

DRUGS (6)
  1. DECADRON PHOSPHATE [Suspect]
     Route: 041
  2. DIPHENHYDRAMINE HCL [Suspect]
     Route: 048
  3. TAXOL [Suspect]
     Indication: GASTRIC CANCER
     Route: 041
  4. GEMZAR [Suspect]
  5. TAXOL [Suspect]
     Indication: BREAST CANCER
     Route: 041
  6. FAMOTIDINE [Concomitant]
     Route: 041

REACTIONS (3)
  - SCIATICA [None]
  - DYSURIA [None]
  - MUSCULAR WEAKNESS [None]
